FAERS Safety Report 15631768 (Version 2)
Quarter: 2019Q1

REPORT INFORMATION
  Report Type: Report from Study
  Country: AU (occurrence: AU)
  Receive Date: 20181119
  Receipt Date: 20190227
  Transmission Date: 20190417
  Serious: Yes (Other)
  Sender: FDA-Public Use
  Company Number: AU-REGENERON PHARMACEUTICALS, INC.-2018-45276

PATIENT

DRUGS (2)
  1. EYLEA [Suspect]
     Active Substance: AFLIBERCEPT
     Indication: NEOVASCULAR AGE-RELATED MACULAR DEGENERATION
     Dosage: EVERY 4-5 WEEKS - LEFT EYE (BILATERAL)
     Route: 031
     Dates: start: 20141031
  2. EYLEA [Suspect]
     Active Substance: AFLIBERCEPT
     Dosage: RIGHT EYE
     Route: 031
     Dates: start: 201808

REACTIONS (9)
  - Visual impairment [Unknown]
  - Gait disturbance [Not Recovered/Not Resolved]
  - Traumatic fracture [Recovering/Resolving]
  - Fall [Unknown]
  - Vision blurred [Recovering/Resolving]
  - Blindness transient [Recovering/Resolving]
  - Product use in unapproved indication [Unknown]
  - Injection site haemorrhage [Recovered/Resolved]
  - Off label use [Unknown]

NARRATIVE: CASE EVENT DATE: 201801
